FAERS Safety Report 5496095-7 (Version None)
Quarter: 2007Q4

REPORT INFORMATION
  Report Type: 
  Country: None (occurrence: None)
  Receive Date: 20071025
  Receipt Date: 20070123
  Transmission Date: 20080405
  Serious: No
  Sender: FDA-Public Use
  Company Number: A0636730A

PATIENT
  Sex: Female

DRUGS (11)
  1. ADVAIR DISKUS 100/50 [Suspect]
     Indication: ASTHMA
     Dosage: 1PUFF TWICE PER DAY
     Route: 055
  2. ALBUTEROL [Suspect]
     Indication: ASTHMA
     Route: 055
  3. XANAX [Concomitant]
  4. DURAGESIC-100 [Concomitant]
  5. PROMETHAZINE [Concomitant]
  6. XANAX [Concomitant]
  7. VALIUM [Concomitant]
  8. HYDROPHED [Concomitant]
  9. EFFEXOR [Concomitant]
  10. LORTAB [Concomitant]
  11. ALBUTEROL [Concomitant]

REACTIONS (2)
  - FEELING JITTERY [None]
  - WHEEZING [None]
